FAERS Safety Report 18261481 (Version 1)
Quarter: 2020Q3

REPORT INFORMATION
  Report Type: Spontaneous
  Country: US (occurrence: US)
  Receive Date: 20200911
  Receipt Date: 20200911
  Transmission Date: 20201103
  Serious: Yes (Hospitalization)
  Sender: FDA-Public Use
  Company Number: None

PATIENT
  Age: 61 Year
  Sex: Female

DRUGS (21)
  1. ALPRAZOLAM. [Concomitant]
     Active Substance: ALPRAZOLAM
  2. DOXYCYCL HYC [Concomitant]
  3. CYCLOSPORINE. [Concomitant]
     Active Substance: CYCLOSPORINE
  4. VALACYCLOVIR [Concomitant]
     Active Substance: VALACYCLOVIR HYDROCHLORIDE
  5. ACITRETIN. [Concomitant]
     Active Substance: ACITRETIN
  6. BETAMETH DIP [Concomitant]
  7. FUROSEMIDE. [Concomitant]
     Active Substance: FUROSEMIDE
  8. MUPIROCIN. [Concomitant]
     Active Substance: MUPIROCIN
  9. TRIAMCINOLON CRE [Concomitant]
  10. VENTOLIN HFA [Concomitant]
     Active Substance: ALBUTEROL SULFATE
  11. AZITHROMYCIN ANHYDROUS. [Concomitant]
     Active Substance: AZITHROMYCIN ANHYDROUS
  12. CIPRODEX [Concomitant]
     Active Substance: CIPROFLOXACIN HYDROCHLORIDE\DEXAMETHASONE
  13. PREDNISONE. [Concomitant]
     Active Substance: PREDNISONE
  14. SIMBRINZA [Concomitant]
     Active Substance: BRIMONIDINE TARTRATE\BRINZOLAMIDE
  15. CLOBETASOL [Concomitant]
     Active Substance: CLOBETASOL
  16. METOPROL SUC ER [Concomitant]
  17. ALBUTEROL NEB [Concomitant]
     Active Substance: ALBUTEROL
  18. TACROLIMUS. [Concomitant]
     Active Substance: TACROLIMUS
  19. COSENTYX [Suspect]
     Active Substance: SECUKINUMAB
     Indication: PSORIASIS
     Dosage: ?          OTHER FREQUENCY:Q4WK;?
     Route: 058
     Dates: start: 20200604
  20. CALCIPOTRIEN CRE [Concomitant]
  21. METOPROL TAR [Concomitant]

REACTIONS (1)
  - Cardiac disorder [None]

NARRATIVE: CASE EVENT DATE: 20200910
